FAERS Safety Report 10420563 (Version 1)
Quarter: 2014Q2

REPORT INFORMATION
  Report Type: Spontaneous
  Country: US (occurrence: None)
  Receive Date: 20140627
  Receipt Date: 20140627
  Transmission Date: 20141212
  Serious: Yes (Other)
  Sender: FDA-Public Use
  Company Number: PHEH2013US011746

PATIENT
  Age: 57 Year
  Sex: Female

DRUGS (3)
  1. DIOVAN HCT (VALSARTAN, HYDROCHLOROTHIAZIDE) UNKNOWN [Suspect]
     Dosage: 1 DF (160 MG VALS)
  2. DIOVAN (VALSARTAN) UNKNOWN [Concomitant]
  3. VITAMINS NOS (NO INGREDIENT SUBSTANCE) [Concomitant]

REACTIONS (1)
  - Hypertension [None]
